APPROVED DRUG PRODUCT: IDOSE TR
Active Ingredient: TRAVOPROST
Strength: 75MCG
Dosage Form/Route: IMPLANT;INTRACAMERAL
Application: N218010 | Product #001
Applicant: GLAUKOS CORP
Approved: Dec 13, 2023 | RLD: Yes | RS: Yes | Type: RX

PATENTS:
Patent 12201557 | Expires: Jun 18, 2030
Patent 11426306 | Expires: Oct 17, 2030
Patent 10206813 | Expires: Oct 17, 2030
Patent 12201555 | Expires: Feb 14, 2031

EXCLUSIVITY:
Code: NP | Date: Dec 13, 2026